FAERS Safety Report 5701752-0 (Version None)
Quarter: 2008Q2

REPORT INFORMATION
  Report Type: 
  Country: None (occurrence: None)
  Receive Date: 20080410
  Receipt Date: 20080410
  Transmission Date: 20081010
  Serious: Yes (Disabling)
  Sender: FDA-Public Use
  Company Number: None

PATIENT
  Age: 71 Year
  Sex: Female
  Weight: 65.318 kg

DRUGS (2)
  1. VYTORIN [Suspect]
     Indication: BLOOD CHOLESTEROL INCREASED
     Dosage: 1 TABLET ONCE A DAY 10/20 - 3/06 10/40 - 03/14/07
     Dates: start: 20060301
  2. VYTORIN [Suspect]
     Indication: BLOOD CHOLESTEROL INCREASED
     Dosage: 1 TABLET ONCE A DAY 10/20 - 3/06 10/40 - 03/14/07
     Dates: start: 20070314

REACTIONS (1)
  - PAIN IN EXTREMITY [None]
